FAERS Safety Report 6819597-7 (Version None)
Quarter: 2010Q3

REPORT INFORMATION
  Report Type: 
  Country: None (occurrence: None)
  Receive Date: 20100701
  Receipt Date: 20091102
  Transmission Date: 20110219
  Serious: No
  Sender: FDA-Public Use
  Company Number: US-TEVA-213996USA

PATIENT
  Sex: Female

DRUGS (3)
  1. AZILECT [Suspect]
     Indication: PARKINSON'S DISEASE
  2. CARBIDOPA [Concomitant]
     Indication: PARKINSON'S DISEASE
  3. MIRTAZAPINE [Concomitant]
     Indication: DEPRESSION

REACTIONS (2)
  - BLOOD PRESSURE INCREASED [None]
  - FALL [None]
